FAERS Safety Report 25686978 (Version 1)
Quarter: 2025Q3

REPORT INFORMATION
  Report Type: Spontaneous
  Country: IN (occurrence: IN)
  Receive Date: 20250816
  Receipt Date: 20250816
  Transmission Date: 20251021
  Serious: Yes (Hospitalization)
  Sender: HETERO
  Company Number: IN-HETERO-HET2025IN04778

PATIENT
  Age: 84 Year
  Sex: Male
  Weight: 60 kg

DRUGS (11)
  1. DONEPEZIL [Interacting]
     Active Substance: DONEPEZIL
     Indication: Dementia
     Route: 048
  2. ATRACURIUM [Suspect]
     Active Substance: ATRACURIUM
     Indication: General anaesthesia
     Route: 065
  3. ATRACURIUM [Suspect]
     Active Substance: ATRACURIUM
     Route: 065
  4. OLANZAPINE [Concomitant]
     Active Substance: OLANZAPINE
     Indication: Dementia
     Route: 048
  5. QUETIAPINE [Concomitant]
     Active Substance: QUETIAPINE
     Indication: Dementia
     Route: 048
  6. GLYCOPYRROLATE [Concomitant]
     Active Substance: GLYCOPYRROLATE
     Indication: Premedication
     Route: 065
  7. MIDAZOLAM [Concomitant]
     Active Substance: MIDAZOLAM
     Indication: Premedication
     Route: 065
  8. PROPOFOL [Concomitant]
     Active Substance: PROPOFOL
     Indication: General anaesthesia
     Route: 065
  9. BUPIVACAINE [Concomitant]
     Active Substance: BUPIVACAINE
     Indication: General anaesthesia
     Route: 065
  10. LIDOCAINE HYDROCHLORIDE [Concomitant]
     Active Substance: LIDOCAINE HYDROCHLORIDE
     Indication: General anaesthesia
     Route: 065
  11. DEXAMETHASONE [Concomitant]
     Active Substance: DEXAMETHASONE
     Indication: General anaesthesia
     Route: 065

REACTIONS (2)
  - Drug resistance [Recovered/Resolved]
  - Drug interaction [Recovered/Resolved]
